FAERS Safety Report 6174990-3 (Version None)
Quarter: 2009Q2

REPORT INFORMATION
  Report Type: 
  Country: None (occurrence: None)
  Receive Date: 20090430
  Receipt Date: 20081107
  Transmission Date: 20091009
  Serious: No
  Sender: FDA-Public Use
  Company Number: US-ASTRAZENECA-2008UW25035

PATIENT
  Age: 36 Year
  Sex: Female
  Weight: 78.5 kg

DRUGS (1)
  1. NEXIUM [Suspect]
     Indication: GASTROOESOPHAGEAL REFLUX DISEASE
     Dosage: 40 MG
     Route: 048
     Dates: start: 20081031

REACTIONS (3)
  - BLADDER DISCOMFORT [None]
  - MICTURITION URGENCY [None]
  - URINE ODOUR ABNORMAL [None]
